FAERS Safety Report 7391820-2 (Version None)
Quarter: 2011Q2

REPORT INFORMATION
  Report Type: 
  Country: None (occurrence: None)
  Receive Date: 20110404
  Receipt Date: 20110326
  Transmission Date: 20111010
  Serious: Yes (Hospitalization)
  Sender: FDA-Public Use
  Company Number: IT-ROCHE-767759

PATIENT
  Sex: Female

DRUGS (7)
  1. LYRICA [Concomitant]
     Route: 048
  2. ORAMORPH SR [Concomitant]
  3. HERCEPTIN [Suspect]
     Dosage: FREQUENCY: CYCLIC
     Route: 042
     Dates: start: 20110303, end: 20110303
  4. COAPROVEL [Concomitant]
     Dosage: DOSE: 150MG+12.5MG
     Route: 048
  5. LANSOX [Concomitant]
  6. NORVASC [Concomitant]
  7. HYDROMORPHONE HCL [Concomitant]
     Route: 048

REACTIONS (4)
  - SYNCOPE [None]
  - ABDOMINAL PAIN UPPER [None]
  - SINUS BRADYCARDIA [None]
  - EXTRASYSTOLES [None]
